FAERS Safety Report 4539947-4 (Version None)
Quarter: 2004Q4

REPORT INFORMATION
  Report Type: 
  Country: None (occurrence: None)
  Receive Date: 20041223
  Receipt Date: 20041207
  Transmission Date: 20050328
  Serious: Yes (Other)
  Sender: FDA-Public Use
  Company Number: 220002L04DEU

PATIENT
  Age: 61 Year
  Sex: Male
  Weight: 63 kg

DRUGS (4)
  1. RECOMBINANT HUMAN GROWTH HORMONE (SOMATROPIN) [Suspect]
     Indication: GROWTH HORMONE DEFICIENCY
     Dosage: 2 IU, 1 IN 1 DAYS
  2. LEVOTHYROXINE SODIUM [Concomitant]
  3. TESTOSTERONE ENANTATE [Concomitant]
  4. CORTISONE ACETATE [Concomitant]

REACTIONS (11)
  - ACROMEGALY [None]
  - BRADYCARDIA [None]
  - DEPRESSION [None]
  - DIZZINESS [None]
  - DRUG WITHDRAWAL SYNDROME [None]
  - EMPTY SELLA SYNDROME [None]
  - HEADACHE [None]
  - HYPOTENSION [None]
  - INSULIN-LIKE GROWTH FACTOR INCREASED [None]
  - MACROGLOSSIA [None]
  - SLEEP APNOEA SYNDROME [None]
